FAERS Safety Report 21991903 (Version 1)
Quarter: 2023Q1

REPORT INFORMATION
  Report Type: Spontaneous
  Country: US (occurrence: US)
  Receive Date: 20230214
  Receipt Date: 20230214
  Transmission Date: 20230417
  Serious: No
  Sender: FDA-Public Use
  Company Number: US-Covis Pharma GmbH-2023COV00220

PATIENT
  Sex: Male

DRUGS (1)
  1. OMNARIS [Suspect]
     Active Substance: CICLESONIDE
     Indication: Product used for unknown indication
     Dosage: PATIENT USES AS NEEDED.
     Route: 045

REACTIONS (3)
  - Illness [Not Recovered/Not Resolved]
  - Adverse event [Not Recovered/Not Resolved]
  - Off label use [Unknown]
